APPROVED DRUG PRODUCT: NUBEQA
Active Ingredient: DAROLUTAMIDE
Strength: 300MG
Dosage Form/Route: TABLET;ORAL
Application: N212099 | Product #001
Applicant: BAYER HEALTHCARE PHARMACEUTICALS INC
Approved: Jul 30, 2019 | RLD: Yes | RS: Yes | Type: RX

PATENTS:
Patent 10835515 | Expires: Jan 28, 2036
Patent 10835515 | Expires: Jan 28, 2036
Patent 10835515 | Expires: Jan 28, 2036
Patent 8975254 | Expires: Mar 25, 2033
Patent 8975254 | Expires: Mar 25, 2033
Patent 8975254 | Expires: Mar 25, 2033
Patent 9657003 | Expires: Oct 27, 2030
Patent 9657003 | Expires: Oct 27, 2030
Patent 9657003 | Expires: Oct 27, 2030
Patent 10835515 | Expires: Jan 28, 2036
Patent 12329742 | Expires: Jun 17, 2042
Patent 10010530 | Expires: Jan 28, 2036
Patent 11046713 | Expires: Oct 27, 2030
Patent 10383853 | Expires: Jan 28, 2036
Patent 11168058 | Expires: Feb 27, 2038
Patent 10711013 | Expires: Oct 27, 2030

EXCLUSIVITY:
Code: I-971 | Date: Jun 3, 2028